FAERS Safety Report 21744699 (Version 1)
Quarter: 2022Q4

REPORT INFORMATION
  Report Type: Report from Study
  Country: NZ (occurrence: NZ)
  Receive Date: 20221218
  Receipt Date: 20221218
  Transmission Date: 20230113
  Serious: Yes (Other)
  Sender: FDA-Public Use
  Company Number: NZ-002147023-NVSC2020NZ144837

PATIENT
  Sex: Male

DRUGS (3)
  1. COSENTYX [Suspect]
     Active Substance: SECUKINUMAB
     Indication: Psoriasis
     Dosage: 300 MG, QW
     Route: 058
     Dates: start: 20200520
  2. COSENTYX [Suspect]
     Active Substance: SECUKINUMAB
     Dosage: 300 MG, QMO
     Route: 058
  3. COSENTYX [Suspect]
     Active Substance: SECUKINUMAB
     Dosage: UNK
     Route: 058

REACTIONS (5)
  - Non-Hodgkin^s lymphoma [Unknown]
  - Decreased appetite [Not Recovered/Not Resolved]
  - Arthralgia [Unknown]
  - Weight decreased [Unknown]
  - Skin fissures [Unknown]
